FAERS Safety Report 15518340 (Version 2)
Quarter: 2018Q4

REPORT INFORMATION
  Report Type: Report from Study
  Country: GB (occurrence: GB)
  Receive Date: 20181017
  Receipt Date: 20181031
  Transmission Date: 20190205
  Serious: Yes (Death, Other)
  Sender: FDA-Public Use
  Company Number: GB-MYLANLABS-2018M1077640

PATIENT
  Age: 87 Year
  Sex: Female

DRUGS (3)
  1. APIXABAN [Suspect]
     Active Substance: APIXABAN
     Indication: CEREBROVASCULAR ACCIDENT PROPHYLAXIS
     Dosage: 2.5 MG, BID
     Route: 065
     Dates: start: 2015, end: 20180514
  2. CREON [Concomitant]
     Active Substance: PANCRELIPASE AMYLASE\PANCRELIPASE LIPASE\PANCRELIPASE PROTEASE
     Indication: PRODUCT USED FOR UNKNOWN INDICATION
     Dosage: UNK
     Route: 065
  3. CLOPIDOGREL [Suspect]
     Active Substance: CLOPIDOGREL BISULFATE
     Indication: CARDIAC DISORDER
     Dosage: UNK
     Route: 065

REACTIONS (6)
  - Pulmonary oedema [Unknown]
  - Weight decreased [Unknown]
  - Cardiac failure [Unknown]
  - Gastrointestinal haemorrhage [Unknown]
  - Dyspnoea [Unknown]
  - Death [Fatal]

NARRATIVE: CASE EVENT DATE: 201805
